FAERS Safety Report 10837225 (Version 1)
Quarter: 2015Q1

REPORT INFORMATION
  Report Type: Spontaneous
  Country: US (occurrence: None)
  Receive Date: 20150218
  Receipt Date: 20150218
  Transmission Date: 20150721
  Serious: Yes (Hospitalization)
  Sender: FDA-Public Use
  Company Number: 2015AP006442

PATIENT
  Age: 53 Year
  Sex: Female
  Weight: 84 kg

DRUGS (11)
  1. ASPIRIN  (ACETAYLSALICYLIC ACID) [Concomitant]
  2. FERRIPROX [Suspect]
     Active Substance: DEFERIPRONE
     Indication: HAEMOCHROMATOSIS
     Route: 048
     Dates: start: 20131125, end: 201501
  3. METOPROLOL TARTRATE (METOPROLOL TARTATE) [Concomitant]
  4. GABAPENTIN (GABAPENTIN) [Concomitant]
     Active Substance: GABAPENTIN
  5. SIMVASTATIN (SIMVASTATIN) [Concomitant]
     Active Substance: SIMVASTATIN
  6. TRAMADOL (TRAMADOL) [Concomitant]
     Active Substance: TRAMADOL
  7. OMEPRAZOLE (OMEPRAZOLE) [Concomitant]
     Active Substance: OMEPRAZOLE
  8. VIDAZA (AZACITIDINE) [Concomitant]
  9. INSULIN (INSULIN) [Concomitant]
     Active Substance: INSULIN NOS
  10. FERRIPROX [Suspect]
     Active Substance: DEFERIPRONE
     Indication: MYELODYSPLASTIC SYNDROME
     Route: 048
     Dates: start: 20131125, end: 201501
  11. BENAZEPRIL [Concomitant]
     Active Substance: BENAZEPRIL\BENAZEPRIL HYDROCHLORIDE

REACTIONS (3)
  - Pelvic neoplasm [None]
  - Hepatomegaly [None]
  - Colon cancer [None]

NARRATIVE: CASE EVENT DATE: 20150123
